FAERS Safety Report 15690768 (Version 1)
Quarter: 2018Q4

REPORT INFORMATION
  Report Type: Spontaneous
  Country: US (occurrence: US)
  Receive Date: 20181205
  Receipt Date: 20181205
  Transmission Date: 20190205
  Serious: No
  Sender: FDA-Public Use
  Company Number: US-THERAVANCE-2018-000039

PATIENT
  Age: 74 Year

DRUGS (1)
  1. VIBATIV [Suspect]
     Active Substance: TELAVANCIN HYDROCHLORIDE
     Indication: STAPHYLOCOCCAL BACTERAEMIA

REACTIONS (2)
  - Off label use [Unknown]
  - Blood creatinine increased [Unknown]
